FAERS Safety Report 9357781 (Version 1)
Quarter: 2013Q2

REPORT INFORMATION
  Report Type: Spontaneous
  Country: US (occurrence: US)
  Receive Date: 20130620
  Receipt Date: 20130620
  Transmission Date: 20140414
  Serious: No
  Sender: FDA-Public Use
  Company Number: US-US-EMD SERONO, INC.-7018178

PATIENT
  Age: 45 Year
  Sex: Female

DRUGS (2)
  1. REBIF [Suspect]
     Indication: PRODUCT USED FOR UNKNOWN INDICATION
     Route: 058
     Dates: start: 20100824
  2. REBIF [Suspect]
     Route: 058

REACTIONS (5)
  - Dyspnoea [Recovered/Resolved]
  - Respiratory tract congestion [Unknown]
  - Chest pain [Recovered/Resolved]
  - Malaise [Unknown]
  - Pyrexia [Unknown]
